FAERS Safety Report 11913240 (Version 2)
Quarter: 2017Q3

REPORT INFORMATION
  Report Type: Spontaneous
  Country: US (occurrence: US)
  Receive Date: 20160113
  Receipt Date: 20170928
  Transmission Date: 20171127
  Serious: Yes (Life-Threatening, Hospitalization, Other)
  Sender: FDA-Public Use
  Company Number: US-SUN PHARMACEUTICAL INDUSTRIES LTD-2015US-109623

PATIENT
  Age: 28 Year
  Sex: Male

DRUGS (1)
  1. NAPROXEN. [Suspect]
     Active Substance: NAPROXEN
     Indication: PRODUCT USED FOR UNKNOWN INDICATION
     Dosage: APPROXIMATELY 320 TABLETS
     Route: 048

REACTIONS (7)
  - Overdose [Recovered/Resolved]
  - Generalised tonic-clonic seizure [Recovered/Resolved]
  - Suicide attempt [Recovered/Resolved]
  - Hypotension [Recovered/Resolved]
  - Toxicity to various agents [Recovered/Resolved]
  - Metabolic acidosis [Recovered/Resolved]
  - Renal failure [Recovered/Resolved]
